FAERS Safety Report 4895832-X (Version None)
Quarter: 2006Q1

REPORT INFORMATION
  Report Type: 
  Country: None (occurrence: None)
  Receive Date: 20060125
  Receipt Date: 20060103
  Transmission Date: 20060701
  Serious: Yes (Hospitalization, Other)
  Sender: FDA-Public Use
  Company Number: DEU-2005-0001870

PATIENT
  Age: 32 Year
  Sex: Female

DRUGS (4)
  1. PROVIDONE IODINE TOPICAL SOLUTION [Suspect]
     Dosage: SEE TEXT, TOPICAL
     Route: 061
  2. MORPHINE SULFATE INJ [Suspect]
     Indication: PAIN
     Dosage: 0.02 MG/ML, SEE TEXT, EPIDURAL
     Route: 008
  3. BUPIVACAINE (BUPIVACAINE) INJECTABLE [Suspect]
     Indication: PAIN
     Dosage: SEE TEXT, EPIDURAL
     Route: 008
  4. ACETAMINOPHEN [Concomitant]

REACTIONS (19)
  - ABSCESS [None]
  - BACK PAIN [None]
  - BACTERIAL INFECTION [None]
  - BLOOD PRESSURE DECREASED [None]
  - BODY TEMPERATURE DECREASED [None]
  - C-REACTIVE PROTEIN INCREASED [None]
  - DRUG EFFECT DECREASED [None]
  - ERYTHEMA [None]
  - FISTULA [None]
  - HAEMORRHAGE [None]
  - HEADACHE [None]
  - INFLAMMATION [None]
  - MALAISE [None]
  - MUSCLE STRAIN [None]
  - PUNCTURE SITE HAEMORRHAGE [None]
  - PURULENT DISCHARGE [None]
  - PYREXIA [None]
  - STAPHYLOCOCCAL ABSCESS [None]
  - WHITE BLOOD CELL COUNT INCREASED [None]
